FAERS Safety Report 9843339 (Version 1)
Quarter: 2014Q1

REPORT INFORMATION
  Report Type: Spontaneous
  Country: US (occurrence: US)
  Receive Date: 20140125
  Receipt Date: 20140125
  Transmission Date: 20141002
  Serious: Yes (Hospitalization, Other)
  Sender: FDA-Public Use
  Company Number: US-JNJFOC-20140106723

PATIENT
  Age: 27 Year
  Sex: Female
  Weight: 95.26 kg

DRUGS (4)
  1. TYLENOL [Suspect]
     Indication: PRODUCT USED FOR UNKNOWN INDICATION
     Route: 048
  2. TYLENOL [Suspect]
     Indication: PRODUCT USED FOR UNKNOWN INDICATION
     Route: 048
  3. SEROQUEL [Concomitant]
     Indication: BIPOLAR DISORDER
     Route: 065
  4. TRAZODONE [Concomitant]
     Indication: SLEEP DISORDER
     Route: 065

REACTIONS (2)
  - Liver injury [Not Recovered/Not Resolved]
  - Overdose [Unknown]
